FAERS Safety Report 9347243 (Version 1)
Quarter: 2013Q2

REPORT INFORMATION
  Report Type: Spontaneous
  Country: ES (occurrence: ES)
  Receive Date: 20130613
  Receipt Date: 20130613
  Transmission Date: 20140414
  Serious: Yes (Other)
  Sender: FDA-Public Use
  Company Number: ES-VERTEX PHARMACEUTICALS INC-2013-007019

PATIENT
  Sex: Male

DRUGS (3)
  1. INCIVO [Suspect]
     Indication: HEPATITIS C
     Route: 048
  2. PEG-INTERFERON [Concomitant]
     Indication: HEPATITIS C
     Dosage: UNK
  3. RIBAVIRIN [Concomitant]
     Indication: HEPATITIS C
     Dosage: UNK

REACTIONS (1)
  - Rash [Unknown]
